FAERS Safety Report 5208864-9 (Version None)
Quarter: 2007Q1

REPORT INFORMATION
  Report Type: 
  Country: None (occurrence: None)
  Receive Date: 20070116
  Receipt Date: 20070108
  Transmission Date: 20070707
  Serious: Yes (Hospitalization)
  Sender: FDA-Public Use
  Company Number: FR-BRISTOL-MYERS SQUIBB COMPANY-13640420

PATIENT
  Age: 70 Year
  Sex: Female

DRUGS (3)
  1. ENDOXAN [Suspect]
     Indication: LYMPHOMA
     Route: 042
     Dates: start: 20061109, end: 20061109
  2. FLUDARA [Suspect]
     Indication: LYMPHOMA
     Route: 042
     Dates: start: 20061109, end: 20061109
  3. MABTHERA [Suspect]
     Indication: LYMPHOMA
     Route: 042
     Dates: start: 20061109, end: 20061109

REACTIONS (1)
  - PULMONARY OEDEMA [None]
